FAERS Safety Report 4389017-3 (Version None)
Quarter: 2004Q3

REPORT INFORMATION
  Report Type: 
  Country: None (occurrence: None)
  Receive Date: 20040701
  Receipt Date: 20040701
  Transmission Date: 20050211
  Serious: Yes (Hospitalization)
  Sender: FDA-Public Use
  Company Number: None

PATIENT
  Sex: Male
  Weight: 108 kg

DRUGS (3)
  1. ROFECOXIB [Suspect]
     Indication: PAIN
     Dosage: 25 MG QD
     Dates: start: 20030220, end: 20030304
  2. LISINOPRIL [Concomitant]
  3. CYCLOSPORINE [Concomitant]

REACTIONS (1)
  - RENAL FAILURE ACUTE [None]
